FAERS Safety Report 7075337-0 (Version None)
Quarter: 2010Q4

REPORT INFORMATION
  Report Type: 
  Country: None (occurrence: None)
  Receive Date: 20101030
  Receipt Date: 20100831
  Transmission Date: 20110411
  Serious: No
  Sender: FDA-Public Use
  Company Number: US-WYE-H17329410

PATIENT
  Sex: Female
  Weight: 74.91 kg

DRUGS (3)
  1. PRISTIQ [Suspect]
     Indication: DEPRESSION
     Dates: start: 20100701, end: 20100801
  2. PRISTIQ [Suspect]
     Dosage: CUTTING PILL IN HALF TAKING HALF THE DOSE IN THE MORNING AND THE OTHER HALF IN THE AFTERNOON
     Dates: start: 20100801
  3. PRILOSEC [Concomitant]

REACTIONS (2)
  - HEADACHE [None]
  - WRONG TECHNIQUE IN DRUG USAGE PROCESS [None]
